FAERS Safety Report 7811303-2 (Version None)
Quarter: 2011Q4

REPORT INFORMATION
  Report Type: 
  Country: None (occurrence: None)
  Receive Date: 20111011
  Receipt Date: 20110923
  Transmission Date: 20120403
  Serious: Yes (Hospitalization, Other)
  Sender: FDA-Public Use
  Company Number: NSR_00276_2011

PATIENT
  Sex: Male

DRUGS (1)
  1. VENLAFAXINE [Suspect]
     Indication: PRODUCT USED FOR UNKNOWN INDICATION
     Dosage: (150 MG QD) ; (300 MG QD) ; (150 MG QD) ; (1500 MG QD)

REACTIONS (22)
  - FEAR [None]
  - IRRITABILITY [None]
  - TACHYCARDIA [None]
  - MOOD SWINGS [None]
  - AGITATION [None]
  - SUICIDE ATTEMPT [None]
  - INSOMNIA [None]
  - MAJOR DEPRESSION [None]
  - NAUSEA [None]
  - ASTHENIA [None]
  - DIZZINESS [None]
  - TREMOR [None]
  - TINNITUS [None]
  - IMPULSIVE BEHAVIOUR [None]
  - DECREASED APPETITE [None]
  - DRUG INEFFECTIVE [None]
  - CHEST DISCOMFORT [None]
  - DRUG WITHDRAWAL SYNDROME [None]
  - OVERDOSE [None]
  - HYPERTENSION [None]
  - SELF-MEDICATION [None]
  - HYPERHIDROSIS [None]
